FAERS Safety Report 9038936 (Version 1)
Quarter: 2013Q1

REPORT INFORMATION
  Report Type: Spontaneous
  Country: US (occurrence: None)
  Receive Date: 20130123
  Receipt Date: 20130123
  Transmission Date: 20140127
  Serious: Yes (Death, Disabling)
  Sender: FDA-Public Use
  Company Number: None

PATIENT
  Age: 95 Year
  Sex: Female
  Weight: 48 kg

DRUGS (1)
  1. FASLODEX [Suspect]
     Route: 030
     Dates: start: 20120926

REACTIONS (3)
  - Asthenia [None]
  - Hypophagia [None]
  - Cerebrovascular disorder [None]
